FAERS Safety Report 12251986 (Version 3)
Quarter: 2016Q2

REPORT INFORMATION
  Report Type: Spontaneous
  Country: US (occurrence: US)
  Receive Date: 20160411
  Receipt Date: 20160513
  Transmission Date: 20160815
  Serious: Yes (Hospitalization)
  Sender: FDA-Public Use
  Company Number: US-BEH-2016060935

PATIENT
  Age: 11 Year
  Sex: Female

DRUGS (1)
  1. HIZENTRA [Suspect]
     Active Substance: HUMAN IMMUNOGLOBULIN G
     Indication: IMMUNODEFICIENCY COMMON VARIABLE
     Route: 058
     Dates: start: 20160208

REACTIONS (8)
  - Constipation [Recovering/Resolving]
  - Gastroenteritis norovirus [Recovered/Resolved]
  - Nausea [Not Recovered/Not Resolved]
  - Colitis [Recovered/Resolved]
  - Infusion site mass [Recovering/Resolving]
  - Headache [Recovering/Resolving]
  - Infusion site pain [Recovering/Resolving]
  - Sinusitis [Recovering/Resolving]

NARRATIVE: CASE EVENT DATE: 201602
